FAERS Safety Report 5673944-0 (Version None)
Quarter: 2008Q2

REPORT INFORMATION
  Report Type: 
  Country: None (occurrence: None)
  Receive Date: 20080226
  Receipt Date: 20070314
  Transmission Date: 20081010
  Serious: Yes (Hospitalization)
  Sender: FDA-Public Use
  Company Number: DSA_29646_2007

PATIENT
  Sex: Male

DRUGS (1)
  1. VASOTEC [Suspect]
     Dosage: (10 MG BID ORAL), (5 MG QD ORAL)
     Route: 048

REACTIONS (1)
  - DIZZINESS [None]
